FAERS Safety Report 23913607 (Version 1)
Quarter: 2024Q2

REPORT INFORMATION
  Report Type: Other
  Country: US (occurrence: None)
  Receive Date: 20240529
  Receipt Date: 20240529
  Transmission Date: 20240716
  Serious: Yes (Hospitalization, Other)
  Sender: FDA-Public Use
  Company Number: US-ROCHE-2035507

PATIENT
  Sex: Male
  Weight: 33.7 kg

DRUGS (19)
  1. NUTROPIN AQ [Suspect]
     Active Substance: SOMATROPIN
     Indication: Chronic kidney disease
     Route: 058
     Dates: start: 200911
  2. CELLCEPT [Suspect]
     Active Substance: MYCOPHENOLATE MOFETIL
     Indication: Product used for unknown indication
     Route: 048
  3. CELLCEPT [Suspect]
     Active Substance: MYCOPHENOLATE MOFETIL
     Indication: Product used for unknown indication
     Route: 048
  4. TACROLIMUS [Concomitant]
     Active Substance: TACROLIMUS
     Dosage: 2 CAPS IN THE MORNING AND EVENING
     Route: 048
  5. ACETAMINOPHEN [Concomitant]
     Active Substance: ACETAMINOPHEN
     Indication: Pain
     Dosage: EVERY 4 HRS(Q4H)
     Route: 048
  6. ALBUTEROL [Concomitant]
     Active Substance: ALBUTEROL
     Indication: Wheezing
     Dosage: FORM STRENGTH: 90 MCG?2 PUFF EVERY 4 HOURS
     Route: 055
  7. ALBUTEROL [Concomitant]
     Active Substance: ALBUTEROL
     Indication: Cough
  8. GENTAMICIN [Concomitant]
     Active Substance: GENTAMICIN
  9. OMEPRAZOLE [Concomitant]
     Active Substance: DONEPEZIL HYDROCHLORIDE\OMEPRAZOLE\OMEPRAZOLE MAGNESIUM
     Route: 048
  10. PREDNISONE [Concomitant]
     Active Substance: PREDNISONE
     Dosage: 1.5 TABS(7.5MG) IN THE MORNING
     Route: 048
  11. VESICARE [Concomitant]
     Active Substance: SOLIFENACIN SUCCINATE
     Route: 048
  12. SAIZEN [Concomitant]
     Active Substance: SOMATROPIN
     Route: 058
  13. SEPTRA [Concomitant]
     Active Substance: SULFAMETHOXAZOLE\TRIMETHOPRIM
     Dosage: FORM STRENGTH: 400/80 MG
     Route: 048
  14. BACTRIM [Concomitant]
     Active Substance: SULFAMETHOXAZOLE\TRIMETHOPRIM
  15. NYSTATIN [Concomitant]
     Active Substance: NYSTATIN
  16. SOLU-MEDROL [Concomitant]
     Active Substance: METHYLPREDNISOLONE SODIUM SUCCINATE
  17. SIMULECT [Concomitant]
     Active Substance: BASILIXIMAB
  18. PROGRAF [Concomitant]
     Active Substance: TACROLIMUS
     Dosage: 2 MG IN AM AND 1 MG IN PM
  19. SOLIFENACIN [Concomitant]
     Active Substance: SOLIFENACIN

REACTIONS (41)
  - Blood creatinine increased [Recovered/Resolved]
  - Gastroenteritis [Unknown]
  - Dehydration [Recovered/Resolved]
  - Urinary tract candidiasis [Recovered/Resolved]
  - Vomiting [Recovered/Resolved]
  - Asthma [Recovered/Resolved]
  - Urinary tract infection [Recovered/Resolved]
  - Klebsiella urinary tract infection [Recovered/Resolved]
  - Urinary tract infection enterococcal [Unknown]
  - Bacterial pyelonephritis [Recovered/Resolved]
  - Urinary retention [Unknown]
  - Pyrexia [Unknown]
  - Fatigue [Unknown]
  - Decreased appetite [Unknown]
  - Stomatitis [Recovering/Resolving]
  - Rash [Unknown]
  - Skin papilloma [Unknown]
  - Polyuria [Recovering/Resolving]
  - Clostridium difficile colitis [Unknown]
  - Blood urea increased [Unknown]
  - Blood potassium increased [Unknown]
  - Blood glucose increased [Unknown]
  - Blood alkaline phosphatase decreased [Unknown]
  - Blood osmolarity decreased [Unknown]
  - Blood cholesterol decreased [Unknown]
  - Transferrin saturation decreased [Unknown]
  - Iron binding capacity total decreased [Unknown]
  - Transferrin saturation decreased [Unknown]
  - Red blood cell count decreased [Unknown]
  - Haemoglobin decreased [Unknown]
  - Haematocrit decreased [Unknown]
  - Monocyte count increased [Unknown]
  - Blood bilirubin increased [Unknown]
  - Anion gap decreased [Unknown]
  - Abdominal tenderness [Unknown]
  - Gastritis [Unknown]
  - Hypophosphataemia [Unknown]
  - Hypertension [Unknown]
  - Cushingoid [Unknown]
  - Iron deficiency [Unknown]
  - Hypomagnesaemia [Unknown]

NARRATIVE: CASE EVENT DATE: 20100701
